FAERS Safety Report 11115015 (Version 2)
Quarter: 2015Q4

REPORT INFORMATION
  Report Type: Spontaneous
  Country: US (occurrence: US)
  Receive Date: 20150515
  Receipt Date: 20151202
  Transmission Date: 20160304
  Serious: No
  Sender: FDA-Public Use
  Company Number: US-BIOGENIDEC-2015BI064559

PATIENT
  Sex: Male

DRUGS (6)
  1. TECFIDERA [Suspect]
     Active Substance: DIMETHYL FUMARATE
     Indication: MULTIPLE SCLEROSIS
     Route: 048
  2. PRIMROSE OIL [Concomitant]
  3. AMPYRA [Concomitant]
     Active Substance: DALFAMPRIDINE
     Indication: GAIT DISTURBANCE
     Route: 048
     Dates: start: 20141202
  4. VITAMIN C [Concomitant]
     Active Substance: ASCORBIC ACID
  5. LION^S MANE SUPPLEMENT [Concomitant]
  6. ST JOHN^S WORT [Concomitant]
     Active Substance: ST. JOHN^S WORT

REACTIONS (6)
  - Decreased appetite [Recovered/Resolved]
  - Drug dose omission [Recovered/Resolved]
  - Derealisation [Recovered/Resolved]
  - Cognitive disorder [Recovered/Resolved]
  - Gait disturbance [Recovered/Resolved]
  - Dizziness [Recovered/Resolved]
